FAERS Safety Report 23912221 (Version 1)
Quarter: 2024Q2

REPORT INFORMATION
  Report Type: Spontaneous
  Country: FR (occurrence: FR)
  Receive Date: 20240528
  Receipt Date: 20240528
  Transmission Date: 20240716
  Serious: Yes (Other)
  Sender: FDA-Public Use
  Company Number: None

PATIENT
  Age: 63 Year
  Sex: Female
  Weight: 60 kg

DRUGS (3)
  1. DOXYCYCLINE [Suspect]
     Active Substance: DOXYCYCLINE\DOXYCYCLINE HYCLATE
     Indication: Drug toxicity prophylaxis
     Route: 048
     Dates: start: 20240410
  2. KRAZATI [Suspect]
     Active Substance: ADAGRASIB
     Indication: Colorectal cancer metastatic
     Route: 048
     Dates: start: 20231127, end: 20240327
  3. ERBITUX [Concomitant]
     Active Substance: CETUXIMAB
     Indication: Product used for unknown indication
     Route: 065

REACTIONS (1)
  - Cholestasis [Not Recovered/Not Resolved]

NARRATIVE: CASE EVENT DATE: 20240422
